FAERS Safety Report 5513148-5 (Version None)
Quarter: 2007Q4

REPORT INFORMATION
  Report Type: 
  Country: None (occurrence: None)
  Receive Date: 20071112
  Receipt Date: 20061030
  Transmission Date: 20080405
  Serious: No
  Sender: FDA-Public Use
  Company Number: US-BRISTOL-MYERS SQUIBB COMPANY-13560826

PATIENT
  Sex: Male

DRUGS (8)
  1. SUSTIVA [Suspect]
     Indication: HIV INFECTION
  2. METHADONE HCL [Concomitant]
     Indication: PAIN
  3. TRUVADA [Concomitant]
  4. GEMFIBROZIL [Concomitant]
  5. LIPITOR [Concomitant]
  6. LYRICA [Concomitant]
  7. LORTAB [Concomitant]
  8. NORTRIPTYLINE HCL [Concomitant]

REACTIONS (1)
  - OPIATES NEGATIVE [None]
